FAERS Safety Report 22632359 (Version 1)
Quarter: 2023Q2

REPORT INFORMATION
  Report Type: Report from Study
  Country: BR (occurrence: BR)
  Receive Date: 20230623
  Receipt Date: 20230623
  Transmission Date: 20230722
  Serious: Yes (Death)
  Sender: FDA-Public Use
  Company Number: BR-002147023-NVSC2023BR128367

PATIENT
  Sex: Female

DRUGS (1)
  1. KISQALI [Suspect]
     Active Substance: RIBOCICLIB
     Indication: Breast cancer
     Dosage: UNK
     Route: 065
     Dates: start: 20230204

REACTIONS (4)
  - Death [Fatal]
  - Hypoaesthesia [Recovered/Resolved]
  - Weight decreased [Recovered/Resolved]
  - Eating disorder [Unknown]
